FAERS Safety Report 25334283 (Version 1)
Quarter: 2025Q2

REPORT INFORMATION
  Report Type: Report from Study
  Country: US (occurrence: US)
  Receive Date: 20250520
  Receipt Date: 20250520
  Transmission Date: 20250716
  Serious: No
  Sender: ACADIA PHARMACEUTICALS
  Company Number: US-ACADIA PHARMACEUTICALS INC.-ACA-2025-PIM-005843

PATIENT
  Sex: Female

DRUGS (20)
  1. NUPLAZID [Suspect]
     Active Substance: PIMAVANSERIN TARTRATE
     Indication: Parkinson^s disease psychosis
     Dosage: 34 MILLIGRAM, QD
     Route: 065
  2. AMANTADINE [Concomitant]
     Active Substance: AMANTADINE
  3. OMEPRAZOLE [Concomitant]
     Active Substance: OMEPRAZOLE
  4. LORAZEPAM [Concomitant]
     Active Substance: LORAZEPAM
  5. DONEPEZIL [Concomitant]
     Active Substance: DONEPEZIL
  6. RASAGILINE [Concomitant]
     Active Substance: RASAGILINE
  7. METOPROLOL [Concomitant]
     Active Substance: METOPROLOL
  8. CARBIDOPA AND LEVODOPA [Concomitant]
     Active Substance: CARBIDOPA\LEVODOPA
  9. AMLODIPINE [Concomitant]
     Active Substance: AMLODIPINE BESYLATE
  10. SERTRALINE [Concomitant]
     Active Substance: SERTRALINE HYDROCHLORIDE
  11. GABAPENTIN [Concomitant]
     Active Substance: GABAPENTIN
  12. PRAMIPEXOLE [Concomitant]
     Active Substance: PRAMIPEXOLE
  13. CHOLESTYRAMINE [Concomitant]
     Active Substance: CHOLESTYRAMINE
  14. VITAMIN D3 [Concomitant]
     Active Substance: CHOLECALCIFEROL
  15. TYMLOS [Concomitant]
     Active Substance: ABALOPARATIDE
  16. CLARITHROMYCIN [Concomitant]
     Active Substance: CLARITHROMYCIN
  17. TYLENOL [Concomitant]
     Active Substance: ACETAMINOPHEN
  18. MELATONIN [Concomitant]
     Active Substance: MELATONIN
  19. NAPROXEN [Concomitant]
     Active Substance: NAPROXEN
  20. SUCRALFATE [Concomitant]
     Active Substance: SUCRALFATE

REACTIONS (3)
  - Diarrhoea [Not Recovered/Not Resolved]
  - Musculoskeletal discomfort [Not Recovered/Not Resolved]
  - Confusional state [Not Recovered/Not Resolved]
